FAERS Safety Report 22372815 (Version 1)
Quarter: 2023Q2

REPORT INFORMATION
  Report Type: Spontaneous
  Country: US (occurrence: US)
  Receive Date: 20230526
  Receipt Date: 20230526
  Transmission Date: 20230722
  Serious: Yes (Other)
  Sender: FDA-Public Use
  Company Number: US-TAKEDA-2023TUS050548

PATIENT
  Age: 84 Year
  Sex: Female

DRUGS (15)
  1. TEDUGLUTIDE [Suspect]
     Active Substance: TEDUGLUTIDE
     Indication: Gastrointestinal stoma complication
     Dosage: UNK UNK, QD
     Route: 065
  2. TEDUGLUTIDE [Suspect]
     Active Substance: TEDUGLUTIDE
     Indication: Gastrointestinal stoma complication
     Dosage: UNK UNK, QD
     Route: 065
  3. TEDUGLUTIDE [Suspect]
     Active Substance: TEDUGLUTIDE
     Indication: Gastrointestinal stoma complication
     Dosage: UNK UNK, QD
     Route: 065
  4. TEDUGLUTIDE [Suspect]
     Active Substance: TEDUGLUTIDE
     Indication: Gastrointestinal stoma complication
     Dosage: UNK UNK, QD
     Route: 065
  5. OPIUM TINCTURE [Suspect]
     Active Substance: MORPHINE
     Indication: Frequent bowel movements
     Dosage: UNK
     Route: 065
  6. ATROPINE\DIPHENOXYLATE [Concomitant]
     Active Substance: ATROPINE\DIPHENOXYLATE
     Dosage: UNK
  7. OCTREOTIDE [Concomitant]
     Active Substance: OCTREOTIDE
     Dosage: UNK, 1/WEEK
     Route: 065
  8. AMINO ACIDS\DEXTROSE\ELECTROLYTES NOS\SOYBEAN OIL [Concomitant]
     Active Substance: AMINO ACIDS\DEXTROSE\ELECTROLYTES NOS\SOYBEAN OIL
     Dosage: UNK
     Route: 065
  9. SODIUM CHLORIDE [Concomitant]
     Active Substance: SODIUM CHLORIDE
     Dosage: UNK, 3/WEEK
     Route: 042
  10. FUROSEMIDE [Concomitant]
     Active Substance: FUROSEMIDE
     Indication: Cardiac failure
     Dosage: UNK
  11. VERICIGUAT [Concomitant]
     Active Substance: VERICIGUAT
     Indication: Cardiac failure
     Dosage: UNK
  12. CARVEDILOL [Concomitant]
     Active Substance: CARVEDILOL
     Indication: Cardiac failure
     Dosage: UNK
  13. LOPERAMIDE [Concomitant]
     Active Substance: LOPERAMIDE
     Dosage: UNK
  14. IRON [Concomitant]
     Active Substance: IRON
  15. APIXABAN [Concomitant]
     Active Substance: APIXABAN

REACTIONS (5)
  - Ejection fraction decreased [Unknown]
  - Cardiac failure [Unknown]
  - Hypervolaemia [Unknown]
  - Drug ineffective [Unknown]
  - Off label use [Unknown]
